FAERS Safety Report 9286607 (Version 1)
Quarter: 2013Q2

REPORT INFORMATION
  Report Type: Spontaneous
  Country: BB (occurrence: BB)
  Receive Date: 20130513
  Receipt Date: 20130513
  Transmission Date: 20140414
  Serious: Yes (Other)
  Sender: FDA-Public Use
  Company Number: PHHY2013BB046536

PATIENT
  Age: 70 Year
  Sex: Male

DRUGS (5)
  1. PRAVASTATIN [Suspect]
     Indication: MYOCARDIAL ISCHAEMIA
     Dosage: 40 MG DAILY
     Route: 048
  2. ASPIRIN [Concomitant]
     Route: 048
  3. TRIMETAZIDINE [Concomitant]
  4. LOSARTAN [Concomitant]
  5. FUROSEMIDE [Concomitant]

REACTIONS (3)
  - Parapsoriasis [Recovered/Resolved]
  - Rash maculo-papular [Recovered/Resolved]
  - Skin hyperpigmentation [Recovered/Resolved]
